FAERS Safety Report 6815241-3 (Version None)
Quarter: 2010Q3

REPORT INFORMATION
  Report Type: 
  Country: None (occurrence: None)
  Receive Date: 20100701
  Receipt Date: 20100701
  Transmission Date: 20110219
  Serious: Yes (Life-Threatening, Hospitalization)
  Sender: FDA-Public Use
  Company Number: None

PATIENT
  Age: 83 Year
  Sex: Female

DRUGS (3)
  1. METOPROLOL TARTRATE [Suspect]
     Indication: ATRIAL FIBRILLATION
     Dosage: 50MG QDAY PO
     Route: 048
  2. AMIODARONE HCL [Suspect]
  3. WARFARIN SODIUM [Suspect]

REACTIONS (4)
  - BRADYCARDIA [None]
  - FATIGUE [None]
  - POST PROCEDURAL STROKE [None]
  - SYNCOPE [None]
